FAERS Safety Report 25090737 (Version 2)
Quarter: 2025Q1

REPORT INFORMATION
  Report Type: Spontaneous
  Country: GB (occurrence: None)
  Receive Date: 20250318
  Receipt Date: 20250319
  Transmission Date: 20250409
  Serious: Yes (Life-Threatening)
  Sender: INCYTE
  Company Number: GB-002147023-NVSC2025GB043768

PATIENT

DRUGS (2)
  1. RUXOLITINIB [Suspect]
     Active Substance: RUXOLITINIB
     Indication: Polycythaemia
     Dosage: 20 MG, QD
  2. RUXOLITINIB [Suspect]
     Active Substance: RUXOLITINIB
     Indication: Neoplasm malignant

REACTIONS (2)
  - Terminal state [Not Recovered/Not Resolved]
  - Laboratory test abnormal [Unknown]
